FAERS Safety Report 22387280 (Version 2)
Quarter: 2023Q2

REPORT INFORMATION
  Report Type: Spontaneous
  Country: RU (occurrence: None)
  Receive Date: 20230531
  Receipt Date: 20230612
  Transmission Date: 20230722
  Serious: Yes (Hospitalization)
  Sender: FDA-Public Use
  Company Number: RU-ROCHE-3356711

PATIENT
  Age: 17 Year
  Sex: Female
  Weight: 62 kg

DRUGS (4)
  1. SATRALIZUMAB [Suspect]
     Active Substance: SATRALIZUMAB
     Indication: Neuromyelitis optica spectrum disorder
     Dosage: ON 13/FEB/2023, AND 27/FEB/2023 - 120 MG OF SATRALIZUMAB SUBCUTANEOUSLY (LOADING DOSE).
     Route: 058
     Dates: start: 20230130
  2. SATRALIZUMAB [Suspect]
     Active Substance: SATRALIZUMAB
     Dosage: THE LAST DOSE WAS ADMINISTERED ON 22/MAY/2023
     Route: 058
     Dates: start: 20230327
  3. PREGABALIN [Suspect]
     Active Substance: PREGABALIN
     Indication: Product used for unknown indication
     Route: 065
     Dates: start: 2022
  4. BACLOFEN [Concomitant]
     Active Substance: BACLOFEN
     Dates: end: 20230524

REACTIONS (2)
  - Neuromyelitis optica spectrum disorder [Recovered/Resolved]
  - Toxic encephalopathy [Recovered/Resolved]

NARRATIVE: CASE EVENT DATE: 20230524
